FAERS Safety Report 8571685-3 (Version None)
Quarter: 2012Q3

REPORT INFORMATION
  Report Type: 
  Country: None (occurrence: None)
  Receive Date: 20120806
  Receipt Date: 20120730
  Transmission Date: 20120928
  Serious: Yes (Hospitalization)
  Sender: FDA-Public Use
  Company Number: US-009507513-2012SP036029

PATIENT

DRUGS (8)
  1. METFORMIN HYDROCHLORIDE [Concomitant]
  2. VICTRELIS [Suspect]
     Dates: start: 20120515
  3. ACTOS [Concomitant]
  4. [COMPOSITION UNSPECIFIED] [Concomitant]
  5. CITALOPRAM HYDROBROMIDE [Concomitant]
  6. PRILOSEC [Suspect]
  7. NADOLOL [Concomitant]
  8. RAMIPRIL [Concomitant]

REACTIONS (6)
  - DYSGEUSIA [None]
  - GASTROINTESTINAL HAEMORRHAGE [None]
  - MEDICATION RESIDUE [None]
  - NO THERAPEUTIC RESPONSE [None]
  - THROMBOCYTOPENIA [None]
  - DIARRHOEA [None]
